FAERS Safety Report 8452839-3 (Version None)
Quarter: 2012Q2

REPORT INFORMATION
  Report Type: 
  Country: None (occurrence: None)
  Receive Date: 20120620
  Receipt Date: 20120429
  Transmission Date: 20120825
  Serious: No
  Sender: FDA-Public Use
  Company Number: US-VERTEX PHARMACEUTICALS INC.-AE-2012-006209

PATIENT
  Sex: Female
  Weight: 79.904 kg

DRUGS (6)
  1. TRUVADA [Concomitant]
     Indication: HIV INFECTION
  2. REYATAZ [Concomitant]
     Indication: HIV INFECTION
     Dates: start: 20120209
  3. NORVIR [Concomitant]
     Indication: HIV INFECTION
     Dates: start: 20120209
  4. PEGASYS [Concomitant]
     Indication: HEPATITIS C
     Route: 058
     Dates: start: 20120420
  5. INCIVEK [Suspect]
     Indication: HEPATITIS C
     Route: 048
     Dates: start: 20120421
  6. RIBAVIRIN [Concomitant]
     Indication: HEPATITIS C
     Dates: start: 20120421

REACTIONS (7)
  - OFF LABEL USE [None]
  - PALLOR [None]
  - DECREASED APPETITE [None]
  - ABDOMINAL PAIN UPPER [None]
  - DRY EYE [None]
  - FAECES PALE [None]
  - OCULAR ICTERUS [None]
